FAERS Safety Report 13322639 (Version 1)
Quarter: 2017Q1

REPORT INFORMATION
  Report Type: Spontaneous
  Country: CA (occurrence: CA)
  Receive Date: 20170310
  Receipt Date: 20170310
  Transmission Date: 20170428
  Serious: Yes (Other)
  Sender: FDA-Public Use
  Company Number: CA-JNJFOC-20170225371

PATIENT
  Age: 3 Month
  Sex: Female
  Weight: 9 kg

DRUGS (1)
  1. MICRONOR [Suspect]
     Active Substance: NORETHINDRONE
     Indication: CONTRACEPTION
     Route: 048

REACTIONS (3)
  - Eczema [Recovered/Resolved]
  - Off label use [Unknown]
  - Product use issue [Unknown]
